FAERS Safety Report 10471415 (Version 1)
Quarter: 2014Q3

REPORT INFORMATION
  Report Type: Spontaneous
  Country: US (occurrence: US)
  Receive Date: 20140923
  Receipt Date: 20140923
  Transmission Date: 20150326
  Serious: Yes (Other)
  Sender: FDA-Public Use
  Company Number: US-BAUSCH-BL-2014-005159

PATIENT
  Sex: Female

DRUGS (2)
  1. XENAZINE [Suspect]
     Active Substance: TETRABENAZINE
     Dosage: 25 MG EVERY MORNING AND 12.5 MG AT BEDTIME
     Route: 048
     Dates: start: 201302
  2. XENAZINE [Suspect]
     Active Substance: TETRABENAZINE
     Indication: HUNTINGTON^S DISEASE
     Route: 048
     Dates: start: 201010, end: 201302

REACTIONS (3)
  - Urinary tract infection [Unknown]
  - Depression [Unknown]
  - Confusional state [Unknown]
